FAERS Safety Report 5917481-4 (Version None)
Quarter: 2008Q4

REPORT INFORMATION
  Report Type: 
  Country: None (occurrence: None)
  Receive Date: 20081014
  Receipt Date: 20081003
  Transmission Date: 20090506
  Serious: Yes (Other)
  Sender: FDA-Public Use
  Company Number: US-ROCHE-578587

PATIENT
  Sex: Female
  Weight: 51 kg

DRUGS (9)
  1. CAPECITABINE [Suspect]
     Route: 048
     Dates: start: 20080710, end: 20080716
  2. CAPECITABINE [Suspect]
     Route: 048
     Dates: start: 20080728, end: 20080803
  3. CAPECITABINE [Suspect]
     Route: 048
  4. NEXIUM [Concomitant]
     Route: 048
     Dates: start: 20060101
  5. VYTORIN [Concomitant]
     Route: 048
     Dates: start: 20070101
  6. FLONASE [Concomitant]
     Indication: RHINITIS
     Dosage: ROUTE: NASAL, FORM: SPRAY AND FREQUENCY: DAILY.
     Route: 050
     Dates: start: 20070101
  7. HYDROCHLOROTHIAZIDE [Concomitant]
     Indication: HYPERTENSION
     Dates: start: 20070709
  8. LISINOPRIL [Concomitant]
     Indication: HYPERTENSION
     Dates: start: 20070910
  9. AVASTIN [Concomitant]

REACTIONS (7)
  - DISEASE PROGRESSION [None]
  - FATIGUE [None]
  - FEELING ABNORMAL [None]
  - LIP PAIN [None]
  - MUSCULOSKELETAL PAIN [None]
  - NAUSEA [None]
  - PALMAR-PLANTAR ERYTHRODYSAESTHESIA SYNDROME [None]
